FAERS Safety Report 7869895 (Version 4)
Quarter: 2012Q4

REPORT INFORMATION
  Report Type: 
  Country: US (occurrence: US)
  Receive Date: 20110324
  Receipt Date: 20121029
  Transmission Date: 20130627
  Serious: Yes (Hospitalization, Other)
  Sender: FDA-Public Use
  Company Number: US-ACTELION-A-NJ2011-46250

PATIENT
  Age: 83 Year
  Sex: Male

DRUGS (2)
  1. TRACLEER [Suspect]
     Indication: PULMONARY ARTERIAL HYPERTENSION
     Dosage: UNK
     Route: 048
  2. FUROSEMIDE [Concomitant]

REACTIONS (9)
  - Renal disorder [Unknown]
  - Dialysis [Unknown]
  - Asthma [Unknown]
  - Fluid retention [Recovering/Resolving]
  - Swelling [Recovering/Resolving]
  - Fatigue [Unknown]
  - Arthralgia [Unknown]
  - Rash [Not Recovered/Not Resolved]
  - Hypokalaemia [Unknown]
